FAERS Safety Report 6545926-8 (Version None)
Quarter: 2010Q1

REPORT INFORMATION
  Report Type: 
  Country: None (occurrence: None)
  Receive Date: 20100121
  Receipt Date: 20100113
  Transmission Date: 20100710
  Serious: Yes (Hospitalization, Other)
  Sender: FDA-Public Use
  Company Number: US-AMGEN-US385809

PATIENT
  Sex: Female
  Weight: 75.4 kg

DRUGS (16)
  1. ENBREL [Suspect]
     Indication: RHEUMATOID ARTHRITIS
     Route: 065
     Dates: start: 20090704, end: 20091123
  2. VITAMIN TAB [Concomitant]
     Route: 048
     Dates: start: 20090520, end: 20091224
  3. PREDNISONE [Concomitant]
     Route: 048
     Dates: start: 20090520, end: 20091225
  4. VIVELLE [Concomitant]
     Route: 062
     Dates: start: 20090508, end: 20090729
  5. PROGESTERONE [Concomitant]
     Route: 050
     Dates: start: 20090531, end: 20090601
  6. TYLENOL (CAPLET) [Concomitant]
     Route: 048
     Dates: start: 20090601, end: 20090821
  7. TUMS [Concomitant]
     Route: 048
     Dates: start: 20090701, end: 20091228
  8. FIORICET [Concomitant]
     Route: 048
     Dates: start: 20090901, end: 20091013
  9. PERCOCET [Concomitant]
     Route: 048
     Dates: start: 20091014, end: 20091209
  10. PHENERGAN HCL [Concomitant]
     Route: 048
     Dates: start: 20091012, end: 20091209
  11. INFLUENZA VACCINE [Concomitant]
     Route: 050
     Dates: start: 20090928, end: 20090928
  12. BABY ASPIRIN [Concomitant]
     Route: 048
     Dates: start: 20090902, end: 20091224
  13. PRILOSEC [Concomitant]
     Route: 048
     Dates: start: 20091008, end: 20091224
  14. DEMEROL [Concomitant]
     Route: 050
     Dates: start: 20091209, end: 20091209
  15. LOVENOX [Concomitant]
     Route: 065
     Dates: start: 20091201, end: 20091223
  16. TYLENOL COLD AND FLU [Concomitant]
     Route: 048
     Dates: start: 20091015, end: 20091015

REACTIONS (3)
  - MIGRAINE [None]
  - PREMATURE LABOUR [None]
  - PREMATURE RUPTURE OF MEMBRANES [None]
